FAERS Safety Report 9143628 (Version 2)
Quarter: 2013Q1

REPORT INFORMATION
  Report Type: Spontaneous
  Country: JP (occurrence: JP)
  Receive Date: 20130306
  Receipt Date: 20130311
  Transmission Date: 20140127
  Serious: Yes (Other)
  Sender: FDA-Public Use
  Company Number: JP-PFIZER INC-2013076284

PATIENT
  Age: 73 Year
  Sex: 0

DRUGS (2)
  1. ATENOLOL [Suspect]
     Dosage: 25 MG, UNK
     Route: 048
  2. GLACTIV [Suspect]
     Dosage: UNK
     Route: 048

REACTIONS (1)
  - Parkinsonian crisis [Unknown]
